FAERS Safety Report 22090199 (Version 1)
Quarter: 2023Q1

REPORT INFORMATION
  Report Type: Spontaneous
  Country: US (occurrence: US)
  Receive Date: 20230313
  Receipt Date: 20230313
  Transmission Date: 20230418
  Serious: Yes (Other)
  Sender: FDA-Public Use
  Company Number: US-BAYER-2023A027224

PATIENT
  Age: 68 Year
  Sex: Female

DRUGS (1)
  1. AFRIN ORIGINAL NASAL [Suspect]
     Active Substance: OXYMETAZOLINE HYDROCHLORIDE
     Dosage: 2 PUFF(S), BID
     Route: 045
     Dates: start: 20230302

REACTIONS (5)
  - Drug dependence [Unknown]
  - Nasal obstruction [Unknown]
  - Nasal oedema [Unknown]
  - Incorrect dosage administered [Unknown]
  - Product closure removal difficult [None]
